FAERS Safety Report 10723901 (Version 2)
Quarter: 2015Q1

REPORT INFORMATION
  Report Type: Spontaneous
  Country: US (occurrence: US)
  Receive Date: 20150120
  Receipt Date: 20150216
  Transmission Date: 20150721
  Serious: Yes (Hospitalization, Other)
  Sender: FDA-Public Use
  Company Number: US-SHIRE-US201500305

PATIENT

DRUGS (1)
  1. LIALDA [Suspect]
     Active Substance: MESALAMINE
     Indication: PRODUCT USED FOR UNKNOWN INDICATION
     Dosage: UNK, UNKNOWN
     Route: 048

REACTIONS (6)
  - Diarrhoea [Unknown]
  - Abdominal pain upper [Unknown]
  - Abnormal loss of weight [Unknown]
  - Kidney infection [Unknown]
  - Pancreatic disorder [Unknown]
  - Drug hypersensitivity [Unknown]
